FAERS Safety Report 6492973-0 (Version None)
Quarter: 2009Q4

REPORT INFORMATION
  Report Type: 
  Country: None (occurrence: None)
  Receive Date: 20091211
  Receipt Date: 20091211
  Transmission Date: 20100525
  Serious: Yes (Other)
  Sender: FDA-Public Use
  Company Number: None

PATIENT
  Age: 1 Year
  Sex: Male
  Weight: 12.2471 kg

DRUGS (1)
  1. CIPRODEX [Suspect]
     Indication: EAR INFECTION
     Dosage: 5 DROPS IN BOTH EARS 3 TIMES A DAY OTHER
     Route: 050
     Dates: start: 20091209, end: 20091209

REACTIONS (2)
  - CRYING [None]
  - EAR PAIN [None]
